FAERS Safety Report 5122079-4 (Version None)
Quarter: 2006Q4

REPORT INFORMATION
  Report Type: 
  Country: None (occurrence: None)
  Receive Date: 20061004
  Receipt Date: 20061004
  Transmission Date: 20070319
  Serious: Yes (Death)
  Sender: FDA-Public Use
  Company Number: None

PATIENT
  Sex: Female
  Weight: 162 kg

DRUGS (3)
  1. HUMIRA [Suspect]
     Dosage: SEE IMAGE
     Dates: start: 20041221, end: 20050524
  2. HUMIRA [Suspect]
     Dosage: SEE IMAGE
     Dates: start: 20050901, end: 20060402
  3. METHOTREXATE [Concomitant]

REACTIONS (2)
  - BREAST CANCER [None]
  - METASTASES TO CHEST WALL [None]
